FAERS Safety Report 7437684-X (Version None)
Quarter: 2011Q2

REPORT INFORMATION
  Report Type: 
  Country: None (occurrence: None)
  Receive Date: 20110426
  Receipt Date: 20110401
  Transmission Date: 20111010
  Serious: Yes (Hospitalization)
  Sender: FDA-Public Use
  Company Number: FR-ROCHE-769946

PATIENT
  Sex: Female

DRUGS (3)
  1. ARAVA [Concomitant]
     Dates: start: 20040101, end: 20100903
  2. NAPROXEN SODIUM [Suspect]
     Indication: RHEUMATOID ARTHRITIS
     Dosage: DRUG REPORTED AS NAPROXEN SODIUM HIGH DOSE (} 220 MG)
     Route: 048
  3. REMICADE [Concomitant]
     Dates: start: 20040101, end: 20100903

REACTIONS (2)
  - CREATININE RENAL CLEARANCE DECREASED [None]
  - BLOOD CREATININE INCREASED [None]
